FAERS Safety Report 7987994-2 (Version None)
Quarter: 2011Q4

REPORT INFORMATION
  Report Type: 
  Country: None (occurrence: None)
  Receive Date: 20111216
  Receipt Date: 20110524
  Transmission Date: 20120403
  Serious: No
  Sender: FDA-Public Use
  Company Number: US-BRISTOL-MYERS SQUIBB COMPANY-15773526

PATIENT
  Sex: Male

DRUGS (2)
  1. ABILIFY [Suspect]
  2. TYLENOL W/ CODEINE [Concomitant]

REACTIONS (2)
  - BLOOD GLUCOSE INCREASED [None]
  - PANIC ATTACK [None]
